FAERS Safety Report 21741824 (Version 2)
Quarter: 2023Q1

REPORT INFORMATION
  Report Type: Spontaneous
  Country: IL (occurrence: IL)
  Receive Date: 20221216
  Receipt Date: 20230130
  Transmission Date: 20230418
  Serious: Yes (Other)
  Sender: FDA-Public Use
  Company Number: IL-009507513-2212ISR006370

PATIENT
  Sex: Male

DRUGS (1)
  1. METFORMIN HYDROCHLORIDE\SITAGLIPTIN PHOSPHATE [Suspect]
     Active Substance: METFORMIN HYDROCHLORIDE\SITAGLIPTIN PHOSPHATE
     Dosage: UNK
     Route: 048
     Dates: start: 202012

REACTIONS (1)
  - Neoplasm progression [Unknown]

NARRATIVE: CASE EVENT DATE: 20220101
